FAERS Safety Report 4719453-4 (Version None)
Quarter: 2005Q3

REPORT INFORMATION
  Report Type: 
  Country: None (occurrence: None)
  Receive Date: 20050719
  Receipt Date: 20050706
  Transmission Date: 20060218
  Serious: Yes (Death, Other)
  Sender: FDA-Public Use
  Company Number: 163-20785-05070175

PATIENT
  Age: 54 Year
  Sex: Male

DRUGS (9)
  1. THALOMID [Suspect]
     Indication: MULTIPLE MYELOMA
     Dosage: 400 MG QD ORAL
     Route: 048
  2. PREDNISONE [Concomitant]
  3. VINCRISTINE [Concomitant]
  4. ADRIAMYCIN PFS [Concomitant]
  5. DEXAMETHASONE [Concomitant]
  6. CYCLOPHOSPHAMIDE [Concomitant]
  7. METHYLPREDNISOLONE 16MG TAB [Concomitant]
  8. CISPLATIN [Concomitant]
  9. MELPHALAN [Concomitant]

REACTIONS (4)
  - BACTERIAL SEPSIS [None]
  - CARDIAC ARREST [None]
  - LEUKAEMIA PLASMACYTIC [None]
  - METASTASES TO SKIN [None]
